FAERS Safety Report 21694486 (Version 2)
Quarter: 2022Q4

REPORT INFORMATION
  Report Type: Spontaneous
  Country: TW (occurrence: TW)
  Receive Date: 20221207
  Receipt Date: 20221228
  Transmission Date: 20230112
  Serious: Yes (Hospitalization, Other)
  Sender: FDA-Public Use
  Company Number: TW-PFIZER INC-PV202200117503

PATIENT
  Sex: Female

DRUGS (3)
  1. XELJANZ XR [Suspect]
     Active Substance: TOFACITINIB CITRATE
     Indication: Rheumatoid arthritis
     Dosage: 11 MG, QD
     Route: 048
     Dates: start: 20190812, end: 20201102
  2. XELJANZ XR [Suspect]
     Active Substance: TOFACITINIB CITRATE
     Dosage: 1 DF, CYCLIC
     Route: 048
     Dates: start: 20201103, end: 20221205
  3. XELJANZ XR [Suspect]
     Active Substance: TOFACITINIB CITRATE
     Dosage: 11 MG,QD
     Route: 048
     Dates: start: 20221226

REACTIONS (6)
  - Cellulitis [Recovered/Resolved]
  - Food allergy [Not Recovered/Not Resolved]
  - Erythema [Recovering/Resolving]
  - Swelling face [Recovering/Resolving]
  - Off label use [Unknown]
  - Device colour issue [Unknown]

NARRATIVE: CASE EVENT DATE: 20221201
